FAERS Safety Report 7914197-X (Version None)
Quarter: 2011Q4

REPORT INFORMATION
  Report Type: 
  Country: None (occurrence: None)
  Receive Date: 20111110
  Receipt Date: 20111107
  Transmission Date: 20120403
  Serious: Yes (Life-Threatening, Hospitalization)
  Sender: FDA-Public Use
  Company Number: GER/UKI/11/0021110

PATIENT
  Age: 79 Year
  Sex: Female

DRUGS (16)
  1. CITALOPRAM HYDROBROMIDE [Concomitant]
  2. ZOLPIDEM [Concomitant]
  3. LAMOTRIGINE [Suspect]
     Indication: NERVOUS SYSTEM DISORDER
     Dosage: 25 MG, 2 IN 1 D, ORAL, 50 MG, 2 IN 1 D, ORAL
     Route: 048
     Dates: start: 20110807, end: 20110810
  4. LAMOTRIGINE [Suspect]
     Indication: CONVULSION
     Dosage: 25 MG, 2 IN 1 D, ORAL, 50 MG, 2 IN 1 D, ORAL
     Route: 048
     Dates: start: 20110807, end: 20110810
  5. LAMOTRIGINE [Suspect]
     Indication: NERVOUS SYSTEM DISORDER
     Dosage: 25 MG, 2 IN 1 D, ORAL, 50 MG, 2 IN 1 D, ORAL
     Route: 048
     Dates: start: 20110811, end: 20110822
  6. LAMOTRIGINE [Suspect]
     Indication: CONVULSION
     Dosage: 25 MG, 2 IN 1 D, ORAL, 50 MG, 2 IN 1 D, ORAL
     Route: 048
     Dates: start: 20110811, end: 20110822
  7. BENDROFLUMETHIAZIDE (BENDROFLUMETHIAZIDE) [Concomitant]
  8. PHENYTOIN [Concomitant]
  9. TRAVOPROST (TRAVOPROST) [Concomitant]
  10. ADCAL-D3 (LEKOVITCA) [Concomitant]
  11. ASPIRIN [Concomitant]
  12. OMEPRAZOLE [Concomitant]
  13. ACETAMINOPHEN W/ CODEINE [Concomitant]
  14. ACETAMINOPHEN [Concomitant]
  15. PERINDOPRIL ERBUMINE [Concomitant]
  16. BISOPROLOL FUMARATE [Concomitant]

REACTIONS (11)
  - HAEMOGLOBIN DECREASED [None]
  - PALLOR [None]
  - ESCHERICHIA URINARY TRACT INFECTION [None]
  - BLOOD COUNT ABNORMAL [None]
  - DRUG LEVEL DECREASED [None]
  - NEUTROPENIC SEPSIS [None]
  - SKIN WARM [None]
  - ESCHERICHIA SEPSIS [None]
  - PLATELET COUNT DECREASED [None]
  - PYREXIA [None]
  - RASH ERYTHEMATOUS [None]
